FAERS Safety Report 9780305 (Version 1)
Quarter: 2013Q4

REPORT INFORMATION
  Report Type: Spontaneous
  Country: QA (occurrence: QA)
  Receive Date: 20131224
  Receipt Date: 20131224
  Transmission Date: 20140711
  Serious: Yes (Hospitalization, Other)
  Sender: FDA-Public Use
  Company Number: QA-PAR PHARMACEUTICAL, INC-2013SCPR007827

PATIENT
  Sex: 0

DRUGS (11)
  1. LEVETIRACETAM [Suspect]
     Indication: CONVULSION PROPHYLAXIS
     Dosage: 500 MG, BID
     Route: 048
     Dates: start: 20121005
  2. PHENYTOIN [Suspect]
     Indication: CONVULSION PROPHYLAXIS
     Dosage: 300 MG, OD
     Route: 048
     Dates: start: 20120828, end: 20121005
  3. TEMOZOLOMIDE [Suspect]
     Indication: GLIOBLASTOMA MULTIFORME
     Dosage: 75 MG/M2, / DAY
     Route: 048
     Dates: start: 20121001
  4. TEMOZOLOMIDE [Suspect]
     Dosage: 130 MG, / DAY
     Route: 048
  5. RADIOTHERAPY [Suspect]
     Indication: GLIOBLASTOMA MULTIFORME
     Dosage: UNK, / DAY
     Route: 065
     Dates: start: 20121001
  6. ASPIRIN [Concomitant]
     Indication: CARDIOVASCULAR EVENT PROPHYLAXIS
     Dosage: 1 DF, OD
     Route: 048
  7. ATORVASTATIN [Concomitant]
     Indication: DYSLIPIDAEMIA
     Dosage: 20 MG, OD
     Route: 048
  8. DEXAMETHASONE [Concomitant]
     Indication: GLIOBLASTOMA MULTIFORME
     Dosage: 4 MG, TID
     Route: 048
     Dates: start: 20121001
  9. DEXAMETHASONE [Concomitant]
     Dosage: 8 MG, / DAY
     Route: 065
  10. ENALAPRIL [Concomitant]
     Indication: HYPERTENSION
     Dosage: 1 DF, OD
     Route: 048
  11. TRIMETHOPRIM SULFAMETHOXAZOLE [Concomitant]
     Indication: ANTIFUNGAL PROPHYLAXIS
     Dosage: UNK, UNKNOWN
     Route: 065
     Dates: start: 20121001

REACTIONS (1)
  - Toxic epidermal necrolysis [Recovering/Resolving]
